FAERS Safety Report 26131620 (Version 2)
Quarter: 2025Q4

REPORT INFORMATION
  Report Type: Spontaneous
  Country: US (occurrence: US)
  Receive Date: 20251208
  Receipt Date: 20251211
  Transmission Date: 20260117
  Serious: Yes (Other)
  Sender: PFIZER
  Company Number: US-PFIZER INC-202500235780

PATIENT
  Age: 19 Month
  Sex: Male

DRUGS (9)
  1. TIGECYCLINE [Suspect]
     Active Substance: TIGECYCLINE
     Indication: Mycobacterium abscessus infection
     Dosage: 1 MG/KG Q12H
     Route: 042
     Dates: start: 202301, end: 202302
  2. TIGECYCLINE [Suspect]
     Active Substance: TIGECYCLINE
     Dosage: 1 MG/KG Q8H
     Route: 042
     Dates: start: 202302, end: 2023
  3. CEFOXITIN [Concomitant]
     Active Substance: CEFOXITIN SODIUM
     Indication: Mycobacterium abscessus infection
     Dosage: 50 MG/KG Q8H
     Route: 042
     Dates: start: 202301, end: 2023
  4. LINEZOLID [Concomitant]
     Active Substance: LINEZOLID
     Indication: Mycobacterium abscessus infection
     Dosage: 10 MG/KG Q8H
     Route: 042
     Dates: start: 202301, end: 202312
  5. AZITHROMYCIN [Concomitant]
     Active Substance: AZITHROMYCIN
     Indication: Mycobacterium abscessus infection
     Dosage: 10 MG/KG PER GT QDAY
     Dates: start: 202301, end: 202302
  6. MEROPENEM [Concomitant]
     Active Substance: MEROPENEM
     Indication: Mycobacterium abscessus infection
     Dosage: 40 MG/KG Q8H
     Route: 042
  7. AMIKACIN [Concomitant]
     Active Substance: AMIKACIN
     Indication: Mycobacterium abscessus infection
     Dosage: 500 MG INHALED Q12H
     Route: 055
     Dates: start: 202302, end: 202303
  8. AMOXICILLIN [Concomitant]
     Active Substance: AMOXICILLIN
     Indication: Mycobacterium abscessus infection
     Dosage: 50 MG/KG/DAY PER GT, DIVIDED TID
     Dates: start: 202303, end: 202311
  9. CLOFAZIMINE [Concomitant]
     Active Substance: CLOFAZIMINE
     Indication: Mycobacterium abscessus infection
     Dosage: 50 MG PER GT, TWICE WEEKLY (1 MG/KG/DAY)
     Dates: start: 202303, end: 202410

REACTIONS (4)
  - Hyperbilirubinaemia [Unknown]
  - Hypertransaminasaemia [Unknown]
  - Off label use [Unknown]
  - Off label use [Unknown]

NARRATIVE: CASE EVENT DATE: 20230101
